FAERS Safety Report 11294589 (Version 1)
Quarter: 2015Q3

REPORT INFORMATION
  Report Type: Spontaneous
  Country: US (occurrence: None)
  Receive Date: 20150626
  Receipt Date: 20150626
  Transmission Date: 20151125
  Serious: Yes (Death)
  Sender: FDA-Public Use
  Company Number: 2015010160

PATIENT
  Age: 55 Year
  Sex: Male

DRUGS (7)
  1. CLONAZEPAM (CLONAZEPAM) [Suspect]
     Active Substance: CLONAZEPAM
  2. METHADONE [Suspect]
     Active Substance: METHADONE HYDROCHLORIDE
  3. COCAINE (COCAINE) [Suspect]
     Active Substance: COCAINE
  4. OXYCODONE (OXYCODONE) [Suspect]
     Active Substance: OXYCODONE
  5. DIPHENHYDRAMINE (DIPHENHYDRAMINE) [Suspect]
     Active Substance: DIPHENHYDRAMINE
  6. MEPROBAMATE (MEPROBAMATE) [Suspect]
     Active Substance: MEPROBAMATE
  7. ALPRAZOLAM (ALPRAZOLAM) [Suspect]
     Active Substance: ALPRAZOLAM

REACTIONS (1)
  - Drug abuse [None]

NARRATIVE: CASE EVENT DATE: 2013
